FAERS Safety Report 13616452 (Version 3)
Quarter: 2017Q3

REPORT INFORMATION
  Report Type: Report from Study
  Country: US (occurrence: US)
  Receive Date: 20170606
  Receipt Date: 20170706
  Transmission Date: 20171127
  Serious: No
  Sender: FDA-Public Use
  Company Number: US-AMGEN-USASL2017083698

PATIENT
  Age: 56 Year
  Sex: Female

DRUGS (2)
  1. ENBREL [Suspect]
     Active Substance: ETANERCEPT
     Indication: RHEUMATOID ARTHRITIS
     Dosage: 50 MG, QWK
     Route: 065
     Dates: start: 20170509, end: 2017
  2. HUMIRA [Concomitant]
     Active Substance: ADALIMUMAB
     Dosage: UNK

REACTIONS (16)
  - Retching [Unknown]
  - Joint swelling [Unknown]
  - Peripheral swelling [Unknown]
  - Hyperaesthesia [Unknown]
  - Arthralgia [Unknown]
  - Joint crepitation [Unknown]
  - Adverse reaction [Unknown]
  - Injection site discolouration [Unknown]
  - Urticaria [Unknown]
  - Diarrhoea [Unknown]
  - Rash [Unknown]
  - Injection site urticaria [Unknown]
  - Pain in extremity [Unknown]
  - Vomiting [Unknown]
  - Gait disturbance [Unknown]
  - Mobility decreased [Unknown]

NARRATIVE: CASE EVENT DATE: 2017
